FAERS Safety Report 16904930 (Version 1)
Quarter: 2019Q4

REPORT INFORMATION
  Report Type: Spontaneous
  Country: DE (occurrence: DE)
  Receive Date: 20191010
  Receipt Date: 20191010
  Transmission Date: 20200122
  Serious: Yes (Other)
  Sender: FDA-Public Use
  Company Number: DE-BAUSCH-BL-2019-055737

PATIENT
  Age: 27 Year
  Sex: Female

DRUGS (4)
  1. PREDNISOLONE. [Suspect]
     Active Substance: PREDNISOLONE
     Indication: ALLERGY PROPHYLAXIS
     Dosage: SYSTEMIC
     Route: 065
  2. ANTITHYMOCYTE GLOBULIN [Concomitant]
     Active Substance: THYMOCYTE IMMUNE GLOBULIN NOS
     Indication: APLASTIC ANAEMIA
  3. CICLOSPORIN [Suspect]
     Active Substance: CYCLOSPORINE
     Dosage: THERAPY HAD BEEN GRADUALLY INCREASED BEFORE HAND TO ACHIEVE SERUM CONCENTRATIONS OF 200 NG/ML
     Route: 065
  4. CICLOSPORIN [Suspect]
     Active Substance: CYCLOSPORINE
     Indication: APLASTIC ANAEMIA
     Route: 065

REACTIONS (8)
  - Ciliary body disorder [Recovered/Resolved]
  - Glaucoma [Recovered/Resolved]
  - Chorioretinal folds [Recovered/Resolved]
  - Mydriasis [Recovered/Resolved]
  - Eye pain [Recovered/Resolved]
  - Drug level increased [Unknown]
  - Retinal detachment [Recovered/Resolved]
  - Visual impairment [Recovered/Resolved]
